FAERS Safety Report 9170548 (Version 1)
Quarter: 2013Q1

REPORT INFORMATION
  Report Type: Spontaneous
  Country: US (occurrence: US)
  Receive Date: 20130319
  Receipt Date: 20130319
  Transmission Date: 20140127
  Serious: No
  Sender: FDA-Public Use
  Company Number: US-ROXANE LABORATORIES, INC.-2013-RO-00389RO

PATIENT
  Age: 30 Year
  Sex: Male

DRUGS (2)
  1. FLUTICASONE [Suspect]
     Indication: RHINITIS
     Route: 045
     Dates: start: 20130222, end: 20130225
  2. B COMPLEX VITAMIN [Concomitant]
     Route: 048

REACTIONS (1)
  - Headache [Recovered/Resolved]
